FAERS Safety Report 22818139 (Version 3)
Quarter: 2023Q4

REPORT INFORMATION
  Report Type: Report from Study
  Country: US (occurrence: US)
  Receive Date: 20230814
  Receipt Date: 20231226
  Transmission Date: 20240110
  Serious: No
  Sender: FDA-Public Use
  Company Number: US-ACADIA PHARMACEUTICALS INC.-ACA-2023-TRF-003069

PATIENT
  Sex: Female

DRUGS (15)
  1. DAYBUE [Suspect]
     Active Substance: TROFINETIDE
     Indication: Rett syndrome
     Dosage: 60 MILLILITER, BID
     Route: 048
     Dates: start: 20230627
  2. DAYBUE [Suspect]
     Active Substance: TROFINETIDE
     Dosage: 60 MILLILITER, BID
     Route: 048
     Dates: end: 20230906
  3. DAYBUE [Suspect]
     Active Substance: TROFINETIDE
     Dosage: 40 MILLILITER, TID
     Route: 065
  4. DAYBUE [Suspect]
     Active Substance: TROFINETIDE
     Dosage: 50 MILLILITER
     Route: 065
  5. KEPPRA [Concomitant]
     Active Substance: LEVETIRACETAM
  6. TRILEPTAL [Concomitant]
     Active Substance: OXCARBAZEPINE
  7. DIAZEPAM [Concomitant]
     Active Substance: DIAZEPAM
  8. MIRALAX [Concomitant]
     Active Substance: POLYETHYLENE GLYCOL 3350
  9. CALCIUM [Concomitant]
     Active Substance: CALCIUM
  10. VITAMIN D3 [Concomitant]
     Active Substance: CHOLECALCIFEROL
  11. ZINC [Concomitant]
     Active Substance: PYRITHIONE ZINC\ZINC\ZINC CHLORIDE
     Dosage: 500 MILLIGRAM
  12. CULTURELLE [Concomitant]
     Active Substance: LACTOBACILLUS RHAMNOSUS
     Indication: Immune enhancement therapy
  13. ZYRTEC [Concomitant]
     Active Substance: CETIRIZINE HYDROCHLORIDE
  14. CHILDRENS ADVIL COLD [Concomitant]
     Active Substance: IBUPROFEN\PSEUDOEPHEDRINE HYDROCHLORIDE
  15. CLONAZEPAM [Concomitant]
     Active Substance: CLONAZEPAM

REACTIONS (11)
  - Bowel movement irregularity [Unknown]
  - Inappropriate schedule of product administration [Unknown]
  - Underdose [Unknown]
  - Drug ineffective [Unknown]
  - Gastrointestinal motility disorder [Unknown]
  - Tremor [Unknown]
  - Nausea [Unknown]
  - Rash [Unknown]
  - Tremor [Recovered/Resolved]
  - Nausea [Recovered/Resolved]
  - Diarrhoea [Recovered/Resolved]

NARRATIVE: CASE EVENT DATE: 20230101
